FAERS Safety Report 15555384 (Version 1)
Quarter: 2018Q4

REPORT INFORMATION
  Report Type: Spontaneous
  Country: US (occurrence: US)
  Receive Date: 20181026
  Receipt Date: 20181026
  Transmission Date: 20190205
  Serious: Yes (Hospitalization)
  Sender: FDA-Public Use
  Company Number: US-PARI RESPIRATORY EQUIPMENT, INC.-2018PAR00044

PATIENT
  Age: 5 Year
  Sex: Male

DRUGS (17)
  1. ALBUTEROL. [Concomitant]
     Active Substance: ALBUTEROL
  2. MONTELUKAST [Concomitant]
     Active Substance: MONTELUKAST SODIUM
  3. URSODIOL. [Concomitant]
     Active Substance: URSODIOL
  4. AQUADEKS [Concomitant]
     Active Substance: MINERALS\VITAMINS
  5. SYMBICORT [Concomitant]
     Active Substance: BUDESONIDE\FORMOTEROL FUMARATE DIHYDRATE
  6. PULMOZYME [Concomitant]
     Active Substance: DORNASE ALFA
  7. IPRATROPIUM [Concomitant]
     Active Substance: IPRATROPIUM
  8. SULFATRIM PD [Concomitant]
  9. POLYETHELENE GLYCOL [Concomitant]
     Active Substance: POLYETHYLENE GLYCOL 3350
  10. HUMULIN R [Concomitant]
     Active Substance: INSULIN HUMAN
  11. PERTZYE [Suspect]
     Active Substance: PANCRELIPASE AMYLASE\PANCRELIPASE LIPASE\PANCRELIPASE PROTEASE
     Indication: CYSTIC FIBROSIS
     Dosage: 2 CAPSULES, 3X/DAY WITH MEALS
     Route: 048
     Dates: start: 20170324
  12. LANTUS [Concomitant]
     Active Substance: INSULIN GLARGINE
  13. KITABIS PAK [Suspect]
     Active Substance: TOBRAMYCIN
     Indication: CYSTIC FIBROSIS
     Dosage: 300 MG, 2X/DAY
     Dates: start: 20180802
  14. RANITIDINE. [Concomitant]
     Active Substance: RANITIDINE
  15. VITAMIN D3 DROPS [Concomitant]
  16. PERTZYE [Suspect]
     Active Substance: PANCRELIPASE AMYLASE\PANCRELIPASE LIPASE\PANCRELIPASE PROTEASE
     Dosage: 1 CAPSULES, WITH SNACKS
     Route: 048
     Dates: start: 20170324
  17. RESTORA SPRINKLES [Concomitant]

REACTIONS (2)
  - Infective pulmonary exacerbation of cystic fibrosis [Unknown]
  - Off label use [Recovered/Resolved]

NARRATIVE: CASE EVENT DATE: 20180802
